FAERS Safety Report 17756433 (Version 1)
Quarter: 2020Q2

REPORT INFORMATION
  Report Type: Spontaneous
  Country: FR (occurrence: FR)
  Receive Date: 20200507
  Receipt Date: 20200507
  Transmission Date: 20200714
  Serious: Yes (Hospitalization)
  Sender: FDA-Public Use
  Company Number: FR-CADILA HEALTHCARE LIMITED-FR-ZYDUS-022673

PATIENT

DRUGS (4)
  1. FILGRASTIM ((BACTERIE/ESCHERICHIA COLI)) [Suspect]
     Active Substance: FILGRASTIM
     Indication: NEUTROPENIA
     Dosage: 30 MEGA-INTERNATIONAL UNIT,30 MU / 0.5 ML SOLUTION FOR INJECTION / INFUSION
     Route: 058
     Dates: start: 20171219, end: 20171225
  2. CLAVULANIC ACID [Suspect]
     Active Substance: CLAVULANIC ACID
     Indication: INFECTION
     Dosage: 375 MILLIGRAM,(INTERVAL :1 DAYS)
     Route: 048
     Dates: start: 20171225, end: 20180101
  3. ALLOPURINOL. [Suspect]
     Active Substance: ALLOPURINOL
     Indication: RENAL LITHIASIS PROPHYLAXIS
     Dosage: 200 MILLIGRAM,(INTERVAL :1 DAYS)
     Route: 048
     Dates: start: 20171214, end: 20180101
  4. AMOXICILLIN. [Suspect]
     Active Substance: AMOXICILLIN
     Indication: INFECTION
     Dosage: 3 GRAM,(INTERVAL :1 DAYS)
     Route: 048
     Dates: start: 20171225, end: 20180101

REACTIONS (1)
  - Dermatitis exfoliative generalised [Recovering/Resolving]

NARRATIVE: CASE EVENT DATE: 20180102
